FAERS Safety Report 11592924 (Version 1)
Quarter: 2015Q4

REPORT INFORMATION
  Report Type: Spontaneous
  Country: US (occurrence: None)
  Receive Date: 20151002
  Receipt Date: 20151002
  Transmission Date: 20160304
  Serious: Yes (Other)
  Sender: FDA-Public Use
  Company Number: None

PATIENT
  Age: 21 Year
  Sex: Female

DRUGS (2)
  1. HUMIRA [Suspect]
     Active Substance: ADALIMUMAB
     Indication: NEUROPATHY PERIPHERAL
     Dosage: 40MG/0.8ML INJECTABLE Q OTHER WEEK
     Route: 058
     Dates: start: 20150828
  2. HUMIRA [Suspect]
     Active Substance: ADALIMUMAB
     Indication: RHEUMATOID ARTHRITIS
     Dosage: 40MG/0.8ML INJECTABLE Q OTHER WEEK
     Route: 058
     Dates: start: 20150828

REACTIONS (1)
  - Headache [None]

NARRATIVE: CASE EVENT DATE: 20150901
